FAERS Safety Report 5028589-2 (Version None)
Quarter: 2006Q2

REPORT INFORMATION
  Report Type: 
  Country: None (occurrence: None)
  Receive Date: 20060615
  Receipt Date: 20060615
  Transmission Date: 20061013
  Serious: Yes (Other)
  Sender: FDA-Public Use
  Company Number: None

PATIENT
  Age: 21 Year
  Sex: Male
  Weight: 73.6642 kg

DRUGS (1)
  1. EFFEXOR XR [Suspect]
     Dates: start: 20060520, end: 20060603

REACTIONS (1)
  - BLISTER [None]
